FAERS Safety Report 5047575-X (Version None)
Quarter: 2006Q3

REPORT INFORMATION
  Report Type: 
  Country: None (occurrence: None)
  Receive Date: 20060711
  Receipt Date: 20060630
  Transmission Date: 20061208
  Serious: Yes (Hospitalization)
  Sender: FDA-Public Use
  Company Number: PHHO2006JP10816

PATIENT
  Age: 62 Year
  Sex: Female
  Weight: 62 kg

DRUGS (5)
  1. DIOVAN [Suspect]
     Indication: HYPERTENSION
     Dosage: 80 MG, QD
     Route: 048
     Dates: start: 20040325, end: 20050420
  2. LIPITOR [Concomitant]
     Indication: HYPERCHOLESTEROLAEMIA
  3. GASMOTIN [Concomitant]
     Indication: GASTRIC ATONY
  4. DIART [Concomitant]
     Indication: OEDEMA
  5. INNOLET [Concomitant]
     Indication: DIABETES MELLITUS

REACTIONS (1)
  - PLEURAL EFFUSION [None]
